FAERS Safety Report 15764073 (Version 1)
Quarter: 2018Q4

REPORT INFORMATION
  Report Type: Spontaneous
  Country: FR (occurrence: FR)
  Receive Date: 20181227
  Receipt Date: 20181227
  Transmission Date: 20190205
  Serious: Yes (Other)
  Sender: FDA-Public Use
  Company Number: FR-PROVELL PHARMACEUTICALS-2060592

PATIENT
  Sex: Female

DRUGS (1)
  1. EUTHYROX [Suspect]
     Active Substance: LEVOTHYROXINE SODIUM
     Indication: THYROID DISORDER

REACTIONS (11)
  - Alopecia [None]
  - Pelvic pain [None]
  - Insomnia [None]
  - Anaemia [None]
  - Fatigue [None]
  - Blood thyroid stimulating hormone abnormal [None]
  - Haemorrhage in pregnancy [Recovered/Resolved]
  - General physical health deterioration [None]
  - Drug hypersensitivity [None]
  - Psychiatric symptom [None]
  - Maternal exposure during pregnancy [None]
